FAERS Safety Report 8170987-2 (Version None)
Quarter: 2012Q1

REPORT INFORMATION
  Report Type: 
  Country: None (occurrence: None)
  Receive Date: 20120113
  Receipt Date: 20111108
  Transmission Date: 20120608
  Serious: No
  Sender: FDA-Public Use
  Company Number: 2011S1000104

PATIENT
  Age: 55 Year
  Sex: Male

DRUGS (11)
  1. BENADRYL /00945501/ [Concomitant]
  2. ASPIRIN [Concomitant]
  3. METOPROLOL SUCCINATE [Concomitant]
  4. SOLU-MEDROL [Concomitant]
  5. COLCHICINE [Concomitant]
  6. PROBENECID [Concomitant]
  7. KRYSTEXXA [Suspect]
     Indication: GOUTY ARTHRITIS
     Dosage: 8 MG;X1; IV
     Route: 042
     Dates: start: 20110923, end: 20110923
  8. KRYSTEXXA [Suspect]
     Indication: GOUTY ARTHRITIS
     Dosage: 8 MG;X1; IV
     Route: 042
     Dates: start: 20111104, end: 20111104
  9. KRYSTEXXA [Suspect]
     Indication: GOUTY ARTHRITIS
     Dosage: 8 MG;X1; IV
     Route: 042
     Dates: start: 20111021, end: 20111021
  10. KRYSTEXXA [Suspect]
     Indication: GOUTY ARTHRITIS
     Dosage: 8 MG;X1; IV
     Route: 042
     Dates: start: 20111007, end: 20111007
  11. BENAZEPRIL HYDROCHLORIDE [Concomitant]

REACTIONS (1)
  - THERAPEUTIC RESPONSE DECREASED [None]
